FAERS Safety Report 5585859-7 (Version None)
Quarter: 2008Q1

REPORT INFORMATION
  Report Type: 
  Country: None (occurrence: None)
  Receive Date: 20080109
  Receipt Date: 20080101
  Transmission Date: 20080703
  Serious: Yes (Hospitalization)
  Sender: FDA-Public Use
  Company Number: GB-ABBOTT-08P-167-0432027-00

PATIENT
  Age: 25 Year
  Sex: Male

DRUGS (12)
  1. CLARITHROMYCIN [Suspect]
     Indication: RESPIRATORY DISORDER
     Route: 065
  2. IBUPROFEN [Suspect]
     Indication: PAIN IN EXTREMITY
     Route: 065
  3. LAMIVUDINE + ZIDOVUDINE [Suspect]
     Indication: HIV TEST POSITIVE
     Route: 065
  4. EFAVIRENZ [Suspect]
     Indication: HIV TEST POSITIVE
     Route: 065
  5. COTRIMOXAZOLE [Suspect]
     Indication: ANTIFUNGAL PROPHYLAXIS
     Route: 065
  6. CIPROFLOXACIN [Suspect]
     Indication: RESPIRATORY DISORDER
     Route: 065
  7. TENOFOVIR [Suspect]
     Indication: HIV TEST POSITIVE
     Route: 065
  8. LAMIVUDINE [Suspect]
     Indication: HIV TEST POSITIVE
     Route: 065
  9. NEVIRAPINE [Suspect]
     Indication: HIV TEST POSITIVE
     Route: 065
  10. LOPERAMIDE HYDROCHLORIDE [Concomitant]
     Indication: DIARRHOEA
     Route: 065
  11. BLOOD TRANSFUSION [Concomitant]
     Indication: HAEMOGLOBIN DECREASED
  12. BACTRIM [Concomitant]
     Indication: DRUG USE FOR UNKNOWN INDICATION
     Route: 065

REACTIONS (1)
  - VANISHING BILE DUCT SYNDROME [None]
